FAERS Safety Report 10017700 (Version 2)
Quarter: 2014Q1

REPORT INFORMATION
  Report Type: Spontaneous
  Country: US (occurrence: US)
  Receive Date: 20140318
  Receipt Date: 20140318
  Transmission Date: 20141002
  Serious: Yes (Other)
  Sender: FDA-Public Use
  Company Number: US-BRISTOL-MYERS SQUIBB COMPANY-17433434

PATIENT
  Sex: Female

DRUGS (3)
  1. ERBITUX [Suspect]
  2. AVASTIN [Suspect]
     Route: 042
  3. 5-FLUOROURACIL [Suspect]
     Dosage: PILLS

REACTIONS (1)
  - Malignant neoplasm progression [Unknown]
